FAERS Safety Report 8084334-8 (Version None)
Quarter: 2012Q1

REPORT INFORMATION
  Report Type: 
  Country: None (occurrence: None)
  Receive Date: 20120128
  Receipt Date: 20110128
  Transmission Date: 20120608
  Serious: No
  Sender: FDA-Public Use
  Company Number: US-ABBOTT-11P-163-0701616-00

PATIENT
  Sex: Female
  Weight: 88.53 kg

DRUGS (14)
  1. NAPROXEN [Concomitant]
     Indication: RHEUMATOID ARTHRITIS
  2. HYDROCODONE BITARTRATE [Concomitant]
     Indication: PAIN
     Dosage: AS NEEDED
  3. RESTASIS [Concomitant]
     Indication: DRY EYE
     Route: 047
  4. SERTRALINE HYDROCHLORIDE [Concomitant]
     Indication: ANXIETY
  5. KRILL OIL [Concomitant]
     Indication: CARDIOVASCULAR EVENT PROPHYLAXIS
  6. PREMARIN [Concomitant]
     Indication: HORMONE REPLACEMENT THERAPY
  7. ASPIRIN [Concomitant]
     Indication: CARDIOVASCULAR EVENT PROPHYLAXIS
  8. OMEPRAZOLE [Concomitant]
     Indication: GASTROOESOPHAGEAL REFLUX DISEASE
  9. PREDNISONE TAB [Concomitant]
     Indication: RHEUMATOID ARTHRITIS
     Dosage: AS NEEDED
  10. VITAMIN TAB [Concomitant]
     Indication: VITAMIN SUPPLEMENTATION
  11. HUMIRA [Suspect]
     Indication: RHEUMATOID ARTHRITIS
     Dates: start: 20101203
  12. FISH OIL [Concomitant]
     Indication: CARDIOVASCULAR EVENT PROPHYLAXIS
  13. SULFASALAZINE [Concomitant]
     Indication: RHEUMATOID ARTHRITIS
  14. METHOTREXATE [Concomitant]
     Indication: RHEUMATOID ARTHRITIS

REACTIONS (4)
  - DRUG INEFFECTIVE [None]
  - INJECTION SITE PAIN [None]
  - INFLAMMATION [None]
  - ARTHRALGIA [None]
